FAERS Safety Report 4483780-9 (Version None)
Quarter: 2004Q4

REPORT INFORMATION
  Report Type: 
  Country: None (occurrence: None)
  Receive Date: 20041025
  Receipt Date: 20041012
  Transmission Date: 20050328
  Serious: Yes (Death, Hospitalization, Other)
  Sender: FDA-Public Use
  Company Number: US-ABBOTT-04P-163-0277473-00

PATIENT
  Sex: Male

DRUGS (2)
  1. CALCIJEX [Suspect]
     Indication: PARATHYROID DISORDER
  2. CALCIUM CARBONATE [Suspect]
     Indication: MINERAL SUPPLEMENTATION
     Route: 048
     Dates: start: 19870101

REACTIONS (6)
  - DRUG INTERACTION [None]
  - FOOT AMPUTATION [None]
  - GANGRENE [None]
  - HEPATIC CIRRHOSIS [None]
  - HEPATITIS [None]
  - HIP FRACTURE [None]
